FAERS Safety Report 6834212-4 (Version None)
Quarter: 2010Q3

REPORT INFORMATION
  Report Type: 
  Country: None (occurrence: None)
  Receive Date: 20100712
  Receipt Date: 20070423
  Transmission Date: 20110219
  Serious: No
  Sender: FDA-Public Use
  Company Number: US-PFIZER INC-2007034125

PATIENT
  Sex: Female
  Weight: 88.45 kg

DRUGS (2)
  1. CHANTIX [Suspect]
     Indication: SMOKING CESSATION THERAPY
     Dates: start: 20070301
  2. VITAMINS [Concomitant]

REACTIONS (2)
  - ACCIDENTAL OVERDOSE [None]
  - WEIGHT INCREASED [None]
